FAERS Safety Report 9166254 (Version 2)
Quarter: 2013Q1

REPORT INFORMATION
  Report Type: Spontaneous
  Country: FR (occurrence: FR)
  Receive Date: 20130315
  Receipt Date: 20130325
  Transmission Date: 20140127
  Serious: Yes (Hospitalization)
  Sender: FDA-Public Use
  Company Number: FR-PFIZER INC-2013082865

PATIENT
  Age: 34 Year
  Sex: Female

DRUGS (3)
  1. ADEPAL [Suspect]
     Indication: CONTRACEPTION
     Dosage: 1 DF, ETHINYL ESTRADIOL 30-40?G/ LEVONORGESTREL 150-200?G
     Route: 048
     Dates: start: 201201
  2. MINIDRIL [Suspect]
     Indication: CONTRACEPTION
     Dosage: 1 DF, ETHINYL ESTRADIOL 30?G/ LEVONORGESTREL 150?G
     Route: 048
     Dates: start: 201203
  3. TARDYFERON [Concomitant]
     Dosage: UNK
     Dates: start: 201203

REACTIONS (1)
  - Cerebral venous thrombosis [Recovered/Resolved]
